FAERS Safety Report 5941186-7 (Version None)
Quarter: 2008Q4

REPORT INFORMATION
  Report Type: 
  Country: None (occurrence: None)
  Receive Date: 20081104
  Receipt Date: 20081024
  Transmission Date: 20090506
  Serious: Yes (Death, Other)
  Sender: FDA-Public Use
  Company Number: US-PFIZER INC-2008075502

PATIENT
  Age: 48 Year
  Sex: Male

DRUGS (1)
  1. LIPITOR [Suspect]
     Indication: HYPERLIPIDAEMIA
     Route: 048
     Dates: start: 20010101

REACTIONS (4)
  - LIP AND/OR ORAL CAVITY CANCER [None]
  - NEOPLASM MALIGNANT [None]
  - PROSTATE CANCER [None]
  - SKIN CANCER [None]
